FAERS Safety Report 14885147 (Version 1)
Quarter: 2018Q2

REPORT INFORMATION
  Report Type: Spontaneous
  Country: AE (occurrence: AE)
  Receive Date: 20180511
  Receipt Date: 20180511
  Transmission Date: 20180711
  Serious: Yes (Death, Other)
  Sender: FDA-Public Use
  Company Number: AE-009507513-1805ARE003639

PATIENT
  Age: 84 Year
  Sex: Female

DRUGS (2)
  1. CASPOFUNGIN ACETATE. [Suspect]
     Active Substance: CASPOFUNGIN ACETATE
     Indication: KLEBSIELLA INFECTION
     Dosage: 0.06 MICRO-G/ML, UNK
     Dates: start: 20170720, end: 2017
  2. CASPOFUNGIN ACETATE. [Suspect]
     Active Substance: CASPOFUNGIN ACETATE
     Indication: CANDIDA INFECTION
     Dosage: 0.016 MICRO-G/ML, UNK
     Dates: start: 20170612, end: 2017

REACTIONS (2)
  - Pathogen resistance [Not Recovered/Not Resolved]
  - Drug ineffective [Fatal]

NARRATIVE: CASE EVENT DATE: 20170612
